FAERS Safety Report 14929869 (Version 4)
Quarter: 2018Q3

REPORT INFORMATION
  Report Type: Spontaneous
  Country: US (occurrence: US)
  Receive Date: 20180523
  Receipt Date: 20180709
  Transmission Date: 20181010
  Serious: Yes (Other)
  Sender: FDA-Public Use
  Company Number: US-ACTELION-A-US2018-172548

PATIENT
  Age: 55 Year
  Sex: Female
  Weight: 71.2 kg

DRUGS (4)
  1. UPTRAVI [Suspect]
     Active Substance: SELEXIPAG
     Indication: PULMONARY HYPERTENSION
     Dosage: 1600 MCG, BID
     Route: 048
  2. LETAIRIS [Concomitant]
     Active Substance: AMBRISENTAN
  3. REMODULIN [Concomitant]
     Active Substance: TREPROSTINIL
  4. ADCIRCA [Concomitant]
     Active Substance: TADALAFIL

REACTIONS (18)
  - Jaw fracture [Unknown]
  - Skin tightness [Unknown]
  - Dyspepsia [Unknown]
  - Cardiac failure congestive [Unknown]
  - Weight decreased [Unknown]
  - Fall [Unknown]
  - Syncope [Unknown]
  - Laceration [Unknown]
  - Skin fissures [Unknown]
  - Diarrhoea [Unknown]
  - Dry skin [Unknown]
  - Abdominal pain [Unknown]
  - Hypotension [Unknown]
  - Dyspnoea exertional [Unknown]
  - Insomnia [Unknown]
  - Oedema peripheral [Unknown]
  - Arthralgia [Unknown]
  - Dyspnoea [Unknown]

NARRATIVE: CASE EVENT DATE: 20180514
